FAERS Safety Report 10737906 (Version 1)
Quarter: 2015Q1

REPORT INFORMATION
  Report Type: Spontaneous
  Country: US (occurrence: US)
  Receive Date: 20150126
  Receipt Date: 20150126
  Transmission Date: 20150721
  Serious: No
  Sender: FDA-Public Use
  Company Number: US-SA-2014SA093743

PATIENT
  Age: 57 Year
  Sex: Female

DRUGS (2)
  1. XALKORI [Concomitant]
     Active Substance: CRIZOTINIB
  2. LASIX [Suspect]
     Active Substance: FUROSEMIDE
     Indication: LUNG DISORDER
     Route: 048
     Dates: start: 20140401

REACTIONS (1)
  - Peripheral swelling [Recovering/Resolving]

NARRATIVE: CASE EVENT DATE: 20140501
